FAERS Safety Report 8526964 (Version 2)
Quarter: 2013Q4

REPORT INFORMATION
  Report Type: Spontaneous
  Country: US (occurrence: US)
  Receive Date: 20120424
  Receipt Date: 20131105
  Transmission Date: 20140711
  Serious: Yes (Hospitalization)
  Sender: FDA-Public Use
  Company Number: US-BAYER-2012-038441

PATIENT
  Age: 26 Year
  Sex: Female
  Weight: 63.6 kg

DRUGS (16)
  1. YAZ [Suspect]
     Dosage: UNK
     Route: 048
     Dates: start: 201101, end: 20110630
  2. YASMIN [Suspect]
     Dosage: UNK
     Dates: start: 201101, end: 20110630
  3. OCELLA [Suspect]
     Dosage: UNK
     Dates: start: 201101, end: 20110630
  4. VALACICLOVIR [Concomitant]
     Dosage: 500 MG, UNK
     Dates: start: 20110520
  5. PERCOCET [Concomitant]
  6. MORPHINE [Concomitant]
     Indication: PAIN
  7. ZITHROMAX [Concomitant]
     Dosage: 250 MG, UNK
  8. XANAX [Concomitant]
  9. DOCUSATE [Concomitant]
  10. OXYCODONE [Concomitant]
  11. COLACE [Concomitant]
  12. MIRALAX [Concomitant]
  13. SENNA [Concomitant]
  14. FENTANYL [Concomitant]
  15. DILAUDID [Concomitant]
     Indication: PAIN
  16. ATIVAN [Concomitant]

REACTIONS (7)
  - Deep vein thrombosis [Recovered/Resolved]
  - Injury [Recovered/Resolved]
  - General physical health deterioration [Recovered/Resolved]
  - Pulmonary embolism [None]
  - Pain [None]
  - Emotional distress [None]
  - Anxiety [None]
